FAERS Safety Report 6643367-6 (Version None)
Quarter: 2010Q1

REPORT INFORMATION
  Report Type: 
  Country: None (occurrence: None)
  Receive Date: 20100319
  Receipt Date: 20100310
  Transmission Date: 20100710
  Serious: Yes (Other)
  Sender: FDA-Public Use
  Company Number: PHHY2010IE15210

PATIENT

DRUGS (1)
  1. CYCLOSPORINE [Suspect]
     Indication: ECZEMA

REACTIONS (1)
  - OSTEONECROSIS [None]
